FAERS Safety Report 7645033-7 (Version None)
Quarter: 2011Q3

REPORT INFORMATION
  Report Type: 
  Country: None (occurrence: None)
  Receive Date: 20110729
  Receipt Date: 20110722
  Transmission Date: 20111222
  Serious: Yes (Death, Hospitalization)
  Sender: FDA-Public Use
  Company Number: GB-GLAXOSMITHKLINE-B0733794A

PATIENT
  Sex: Female

DRUGS (8)
  1. LAPATINIB [Suspect]
     Indication: BREAST CANCER METASTATIC
     Dosage: 1250MG PER DAY
     Route: 048
     Dates: start: 20110708
  2. FILGRASTIM [Suspect]
     Indication: PRODUCT USED FOR UNKNOWN INDICATION
     Dosage: 30MU PER DAY
     Route: 058
     Dates: start: 20110709
  3. DOCETAXEL [Suspect]
     Indication: BREAST CANCER METASTATIC
     Dosage: 75MGM2 EVERY 3 WEEKS
     Route: 042
     Dates: start: 20110708, end: 20110708
  4. LANSOPRAZOLE [Concomitant]
     Indication: DYSPEPSIA
     Dates: start: 20110513
  5. ESCITALOPRAM [Concomitant]
     Indication: DEPRESSION
     Dates: start: 20060606
  6. OXYCODONE HCL [Concomitant]
     Indication: ANALGESIC THERAPY
     Dates: start: 20110621
  7. MOTILIUM [Concomitant]
     Indication: NAUSEA
     Dates: start: 20110610
  8. ZOPICLONE [Concomitant]
     Indication: INSOMNIA
     Dates: start: 20110608

REACTIONS (4)
  - BREAST CANCER [None]
  - ABDOMINAL DISTENSION [None]
  - VOMITING [None]
  - NEUTROPENIA [None]
